FAERS Safety Report 11785033 (Version 4)
Quarter: 2018Q4

REPORT INFORMATION
  Report Type: Spontaneous
  Country: IT (occurrence: IT)
  Receive Date: 20151130
  Receipt Date: 20181105
  Transmission Date: 20190204
  Serious: Yes (Life-Threatening, Hospitalization)
  Sender: FDA-Public Use
  Company Number: IT-SUN PHARMACEUTICAL INDUSTRIES LTD-2015RR-106713

PATIENT
  Age: 70 Year
  Sex: Female

DRUGS (18)
  1. RIVOTRIL [Suspect]
     Active Substance: CLONAZEPAM
     Dosage: 1.8 MG, 28 GTT, AT NIGHT
     Route: 065
  2. RIVOTRIL [Suspect]
     Active Substance: CLONAZEPAM
     Dosage: 18 GTT, DAILY, QD
     Route: 065
  3. LEVOTHYROXINE SODIUM. [Suspect]
     Active Substance: LEVOTHYROXINE SODIUM
     Indication: PRODUCT USED FOR UNKNOWN INDICATION
     Route: 065
  4. QUETIAPINE. [Suspect]
     Active Substance: QUETIAPINE
     Indication: PRODUCT USED FOR UNKNOWN INDICATION
     Dosage: 25 MG, DAILY
     Route: 048
  5. TRITTICO [Suspect]
     Active Substance: TRAZODONE HYDROCHLORIDE
     Indication: PRODUCT USED FOR UNKNOWN INDICATION
     Dosage: 10 GTT, UNK
     Route: 065
  6. RIVOTRIL [Suspect]
     Active Substance: CLONAZEPAM
     Indication: PRODUCT USED FOR UNKNOWN INDICATION
     Dosage: 15 GTT, DAILY, QD
     Route: 065
  7. PANTOPRAZOLE [Suspect]
     Active Substance: PANTOPRAZOLE
     Indication: PRODUCT USED FOR UNKNOWN INDICATION
     Dosage: 20 MG, DAILY, QD
     Route: 048
  8. OLANZAPINE. [Suspect]
     Active Substance: OLANZAPINE
     Dosage: 2.5 MG, DAILY, HS
     Route: 065
     Dates: start: 201501, end: 201503
  9. CARDIOASPIRIN [Suspect]
     Active Substance: ASPIRIN
     Indication: PRODUCT USED FOR UNKNOWN INDICATION
     Dosage: DAILY, GASTRO-RESISTANT COATED TABLET
     Route: 065
  10. TRITTICO [Suspect]
     Active Substance: TRAZODONE HYDROCHLORIDE
     Dosage: 60 MG/ML, 15 GTT, AT NIGHT
     Route: 065
  11. LORAZEPAM. [Suspect]
     Active Substance: LORAZEPAM
     Dosage: 68 GTT, DAILY
  12. LOPRESSOR [Suspect]
     Active Substance: METOPROLOL TARTRATE
     Indication: PRODUCT USED FOR UNKNOWN INDICATION
     Dosage: 25 MG, DAILY
     Route: 048
  13. BRILIQUE [Suspect]
     Active Substance: TICAGRELOR
     Indication: PRODUCT USED FOR UNKNOWN INDICATION
     Dosage: 180 MG, DAILY
     Route: 048
  14. TRIAZOLAM. [Suspect]
     Active Substance: TRIAZOLAM
     Indication: PRODUCT USED FOR UNKNOWN INDICATION
     Dosage: 0.25 MG, DAILY
     Route: 065
  15. OLANZAPINE. [Suspect]
     Active Substance: OLANZAPINE
     Indication: PRODUCT USED FOR UNKNOWN INDICATION
     Dosage: 5 MG, DAILY, HS
     Route: 065
     Dates: start: 201503
  16. LORAZEPAM. [Suspect]
     Active Substance: LORAZEPAM
     Indication: PRODUCT USED FOR UNKNOWN INDICATION
     Dosage: 20 GTT, UNK
     Route: 065
  17. TRITTICO [Suspect]
     Active Substance: TRAZODONE HYDROCHLORIDE
     Dosage: 13 GTT, DAILY
     Route: 065
     Dates: start: 201501, end: 201507
  18. ATORVASTATIN [Suspect]
     Active Substance: ATORVASTATIN
     Indication: PRODUCT USED FOR UNKNOWN INDICATION
     Dosage: 40 MG, DAILY, QD
     Route: 048

REACTIONS (11)
  - Suicide attempt [Unknown]
  - Malaise [Unknown]
  - Epistaxis [Unknown]
  - Weight increased [Unknown]
  - Electrocardiogram T wave inversion [Unknown]
  - Dyspnoea [Unknown]
  - Hypothyroidism [Unknown]
  - Electrocardiogram QT prolonged [Unknown]
  - Feeling cold [Unknown]
  - Fatigue [Unknown]
  - Myocardial ischaemia [Unknown]

NARRATIVE: CASE EVENT DATE: 201507
